FAERS Safety Report 15517438 (Version 1)
Quarter: 2018Q4

REPORT INFORMATION
  Report Type: Spontaneous
  Country: US (occurrence: US)
  Receive Date: 20181011
  Receipt Date: 20181011
  Transmission Date: 20190205
  Serious: No
  Sender: FDA-Public Use
  Company Number: None

PATIENT
  Age: 72 Year
  Sex: Male

DRUGS (1)
  1. TADALFIL TAB 20MG [Suspect]
     Active Substance: TADALAFIL
     Indication: PULMONARY HYPERTENSION
     Route: 048
     Dates: start: 201806

REACTIONS (3)
  - Diarrhoea [None]
  - Abdominal pain upper [None]
  - Muscle spasms [None]

NARRATIVE: CASE EVENT DATE: 20181009
